FAERS Safety Report 4359963-5 (Version None)
Quarter: 2004Q2

REPORT INFORMATION
  Report Type: 
  Country: None (occurrence: None)
  Receive Date: 20040513
  Receipt Date: 20040505
  Transmission Date: 20050107
  Serious: Yes (Disabling, Other)
  Sender: FDA-Public Use
  Company Number: 2004-05-0087

PATIENT
  Age: 69 Year
  Sex: Male

DRUGS (2)
  1. PEG-INTRON (PEGINTERFERON ALFA-2B) INJECTABLE POWDER [Suspect]
     Indication: RENAL CANCER METASTATIC
     Dosage: 180 MCG QW SUBCUTANEOUS
     Route: 058
  2. PEG-INTRON (PEGINTERFERON ALFA-2B) INJECTABLE POWDER [Suspect]

REACTIONS (2)
  - BLINDNESS [None]
  - THROMBOSIS [None]
